FAERS Safety Report 8151436-7 (Version None)
Quarter: 2012Q1

REPORT INFORMATION
  Report Type: 
  Country: None (occurrence: None)
  Receive Date: 20120220
  Receipt Date: 20120208
  Transmission Date: 20120608
  Serious: Yes (Hospitalization)
  Sender: FDA-Public Use
  Company Number: AT-ROCHE-1038620

PATIENT
  Age: 68 Year
  Sex: Female
  Weight: 52 kg

DRUGS (4)
  1. XELODA [Suspect]
     Indication: PRODUCT USED FOR UNKNOWN INDICATION
     Route: 048
     Dates: end: 20110901
  2. XELODA [Suspect]
     Route: 048
     Dates: start: 20111104
  3. PANTOPRAZOLE [Concomitant]
     Dates: start: 20101201
  4. NEUROBION FORTE [Concomitant]
     Dates: start: 20101201

REACTIONS (2)
  - CAROTID ARTERY STENOSIS [None]
  - ISCHAEMIC STROKE [None]
